FAERS Safety Report 12443736 (Version 1)
Quarter: 2016Q2

REPORT INFORMATION
  Report Type: Spontaneous
  Country: CN (occurrence: CN)
  Receive Date: 20160607
  Receipt Date: 20160607
  Transmission Date: 20160815
  Serious: Yes (Other)
  Sender: FDA-Public Use
  Company Number: CN-FRESENIUS KABI-FK201603360

PATIENT
  Age: 60 Year
  Sex: Female

DRUGS (5)
  1. AVELOX [Suspect]
     Active Substance: MOXIFLOXACIN HYDROCHLORIDE
     Indication: LUNG INFECTION
     Route: 041
     Dates: start: 20151112, end: 20151118
  2. INTRALIPID [Suspect]
     Active Substance: EGG PHOSPHOLIPIDS\GLYCERIN\SOYBEAN OIL
     Indication: PARENTERAL NUTRITION
     Route: 041
     Dates: start: 20151113, end: 20151117
  3. SOLU-MEDROL [Concomitant]
     Active Substance: METHYLPREDNISOLONE SODIUM SUCCINATE
     Route: 042
     Dates: start: 20151112, end: 20151118
  4. LOSEC [Suspect]
     Active Substance: OMEPRAZOLE
     Indication: STRESS ULCER
     Route: 041
     Dates: start: 20151113, end: 20151117
  5. MEPEM [Concomitant]
     Active Substance: MEROPENEM
     Route: 042
     Dates: start: 20151112, end: 20151118

REACTIONS (1)
  - Blood creatine phosphokinase increased [Recovering/Resolving]

NARRATIVE: CASE EVENT DATE: 20151113
